FAERS Safety Report 20367216 (Version 1)
Quarter: 2022Q1

REPORT INFORMATION
  Report Type: Spontaneous
  Country: IE (occurrence: IE)
  Receive Date: 20220123
  Receipt Date: 20220123
  Transmission Date: 20220424
  Serious: Yes (Hospitalization, Other)
  Sender: FDA-Public Use
  Company Number: IE-ALVOGEN-2022-ALVOGEN-118206

PATIENT
  Age: 12 Year
  Sex: Female

DRUGS (1)
  1. BUPRENORPHINE [Suspect]
     Active Substance: BUPRENORPHINE
     Indication: Product used for unknown indication
     Dosage: 10 MG/10 MICRO G/H

REACTIONS (8)
  - Loss of consciousness [Recovering/Resolving]
  - Accidental exposure to product [Recovering/Resolving]
  - Dizziness [Recovering/Resolving]
  - Oscillopsia [Recovering/Resolving]
  - Toxicity to various agents [Recovering/Resolving]
  - Product appearance confusion [Recovering/Resolving]
  - Overdose [Recovering/Resolving]
  - Nystagmus [Recovering/Resolving]
